FAERS Safety Report 5004607-2 (Version None)
Quarter: 2006Q2

REPORT INFORMATION
  Report Type: 
  Country: None (occurrence: None)
  Receive Date: 20060512
  Receipt Date: 20060503
  Transmission Date: 20061013
  Serious: Yes (Other)
  Sender: FDA-Public Use
  Company Number: 2006059518

PATIENT
  Age: 57 Year
  Sex: Male

DRUGS (1)
  1. LYRICA [Suspect]
     Indication: PAIN
     Dosage: 150 MG (1 D)

REACTIONS (3)
  - ANKLE FRACTURE [None]
  - DIZZINESS [None]
  - FALL [None]
